FAERS Safety Report 20215068 (Version 1)
Quarter: 2021Q4

REPORT INFORMATION
  Report Type: Report from Study
  Country: US (occurrence: US)
  Receive Date: 20211222
  Receipt Date: 20211222
  Transmission Date: 20220303
  Serious: No
  Sender: FDA-Public Use
  Company Number: US-BEH-2021131072

PATIENT
  Age: 71 Year
  Sex: Male
  Weight: 68.04 kg

DRUGS (9)
  1. HIZENTRA [Suspect]
     Active Substance: HUMAN IMMUNOGLOBULIN G
     Indication: Chronic inflammatory demyelinating polyradiculoneuropathy
     Dosage: 0.4 GRAM PER KILOGRAM, QW, WEEKLY
     Route: 058
     Dates: start: 20210417
  2. HIZENTRA [Suspect]
     Active Substance: HUMAN IMMUNOGLOBULIN G
     Indication: Pruritus
     Dosage: 125 MILLILITER, QW
     Route: 058
     Dates: start: 20210417
  3. HIZENTRA [Suspect]
     Active Substance: HUMAN IMMUNOGLOBULIN G
     Dosage: 125 MILLILITER 25 GRAM, QW
     Route: 058
     Dates: start: 202104
  4. HIZENTRA [Suspect]
     Active Substance: HUMAN IMMUNOGLOBULIN G
     Dosage: UNK
     Route: 058
     Dates: start: 20210508
  5. HIZENTRA [Suspect]
     Active Substance: HUMAN IMMUNOGLOBULIN G
     Dosage: 1X
     Route: 058
     Dates: start: 20210510
  6. HIZENTRA [Suspect]
     Active Substance: HUMAN IMMUNOGLOBULIN G
     Dosage: UNK
     Route: 058
     Dates: start: 20210414
  7. HIZENTRA [Suspect]
     Active Substance: HUMAN IMMUNOGLOBULIN G
     Dosage: 25 GRAM, QW
     Route: 058
     Dates: start: 20210417
  8. TYLENOL [Concomitant]
     Active Substance: ACETAMINOPHEN
     Indication: Premedication
  9. BENADRYL [Concomitant]
     Active Substance: DIPHENHYDRAMINE HYDROCHLORIDE
     Indication: Premedication

REACTIONS (21)
  - Abdominal distension [Unknown]
  - Injection site pain [Unknown]
  - Injection site pruritus [Unknown]
  - No adverse event [Unknown]
  - Incorrect product administration duration [Unknown]
  - Infusion site swelling [Recovered/Resolved]
  - Infusion site extravasation [Recovered/Resolved]
  - Pruritus [Unknown]
  - Abdominal distension [Unknown]
  - Pruritus [Not Recovered/Not Resolved]
  - Energy increased [Unknown]
  - Infusion site extravasation [Unknown]
  - Off label use [Unknown]
  - Infusion site pruritus [Not Recovered/Not Resolved]
  - Energy increased [Unknown]
  - Infusion site pruritus [Unknown]
  - Administration site pruritus [Unknown]
  - Administration site extravasation [Unknown]
  - Energy increased [Unknown]
  - Infusion site extravasation [Unknown]
  - Injection site mass [Unknown]

NARRATIVE: CASE EVENT DATE: 20210101
